FAERS Safety Report 4519159-0 (Version None)
Quarter: 2004Q4

REPORT INFORMATION
  Report Type: 
  Country: None (occurrence: None)
  Receive Date: 20041201
  Receipt Date: 20041122
  Transmission Date: 20050328
  Serious: Yes (Death, Hospitalization)
  Sender: FDA-Public Use
  Company Number: 2004GB02810

PATIENT
  Age: 71 Year
  Sex: Male

DRUGS (5)
  1. ATENOLOL [Suspect]
     Indication: HYPERTENSION
     Dosage: 25 MG QD PO
     Route: 048
  2. LIPITOR [Suspect]
     Indication: HYPERTENSION
     Dosage: 10 MG DAILY PO
     Route: 048
     Dates: start: 20020501
  3. BENDROFLUMETHIAZIDE [Concomitant]
  4. GLICLAZIDE [Concomitant]
  5. ASPIRIN [Concomitant]

REACTIONS (12)
  - ALANINE AMINOTRANSFERASE INCREASED [None]
  - BLOOD ALKALINE PHOSPHATASE INCREASED [None]
  - CIRCULATORY COLLAPSE [None]
  - FALL [None]
  - GAMMA-GLUTAMYLTRANSFERASE INCREASED [None]
  - HAEMATOCRIT ABNORMAL [None]
  - JAUNDICE [None]
  - PANCREATIC CARCINOMA [None]
  - RED BLOOD CELL COUNT ABNORMAL [None]
  - RED BLOOD CELL SEDIMENTATION RATE ABNORMAL [None]
  - RED CELL DISTRIBUTION WIDTH ABNORMAL [None]
  - SUDDEN DEATH [None]
